FAERS Safety Report 9804589 (Version 1)
Quarter: 2014Q1

REPORT INFORMATION
  Report Type: Report from Study
  Country: US (occurrence: US)
  Receive Date: 20140108
  Receipt Date: 20140108
  Transmission Date: 20141002
  Serious: Yes (Other)
  Sender: FDA-Public Use
  Company Number: US-ABBVIE-14P-163-1186226-00

PATIENT
  Sex: Female

DRUGS (3)
  1. HUMIRA [Suspect]
     Indication: COLITIS ULCERATIVE
     Dosage: FREQUENCY NOT OBTAINED
  2. HUMIRA [Suspect]
     Dosage: LOADING DOSE
     Dates: start: 20131214, end: 20131214
  3. HYDROCHLOROTHIAZIDE [Concomitant]
     Indication: SWELLING

REACTIONS (3)
  - Cholelithiasis [Unknown]
  - Colitis ulcerative [Not Recovered/Not Resolved]
  - Upper respiratory tract infection [Not Recovered/Not Resolved]
